FAERS Safety Report 14776283 (Version 2)
Quarter: 2018Q2

REPORT INFORMATION
  Report Type: Spontaneous
  Country: US (occurrence: US)
  Receive Date: 20180418
  Receipt Date: 20180502
  Transmission Date: 20180711
  Serious: No
  Sender: FDA-Public Use
  Company Number: US-BIOMARINAP-US-2018-117800

PATIENT
  Sex: Female
  Weight: 10.8 kg

DRUGS (1)
  1. KUVAN [Suspect]
     Active Substance: SAPROPTERIN DIHYDROCHLORIDE
     Indication: PHENYLKETONURIA
     Dosage: 200 MG, QD
     Route: 048
     Dates: start: 201706, end: 20180407

REACTIONS (3)
  - Irritability [Recovered/Resolved]
  - Discomfort [Recovered/Resolved]
  - Insomnia [Recovered/Resolved]
